FAERS Safety Report 7819621-9 (Version None)
Quarter: 2011Q4

REPORT INFORMATION
  Report Type: 
  Country: None (occurrence: None)
  Receive Date: 20111018
  Receipt Date: 20111018
  Transmission Date: 20120403
  Serious: Yes (Other)
  Sender: FDA-Public Use
  Company Number: None

PATIENT
  Age: 63 Year
  Sex: Female
  Weight: 58.967 kg

DRUGS (1)
  1. RECLAST [Suspect]
     Indication: OSTEOPENIA
     Dosage: UNKNOWN
     Route: 041
     Dates: start: 20111010, end: 20111010

REACTIONS (5)
  - INFLUENZA LIKE ILLNESS [None]
  - GINGIVAL DISORDER [None]
  - PAIN IN JAW [None]
  - TOOTHACHE [None]
  - NECK PAIN [None]
